FAERS Safety Report 5327477-1 (Version None)
Quarter: 2007Q2

REPORT INFORMATION
  Report Type: 
  Country: None (occurrence: None)
  Receive Date: 20070517
  Receipt Date: 20070131
  Transmission Date: 20071010
  Serious: Yes (Hospitalization)
  Sender: FDA-Public Use
  Company Number: US-JNJFOC-20070103223

PATIENT
  Age: 27 Year
  Sex: Male

DRUGS (1)
  1. TRAMADOL IR [Suspect]
     Indication: TOOTH EXTRACTION

REACTIONS (5)
  - DISORIENTATION [None]
  - DIZZINESS [None]
  - OVERDOSE [None]
  - PRURITUS [None]
  - SOMNOLENCE [None]
